FAERS Safety Report 4970654-X (Version None)
Quarter: 2006Q2

REPORT INFORMATION
  Report Type: 
  Country: None (occurrence: None)
  Receive Date: 20060411
  Receipt Date: 20060411
  Transmission Date: 20061013
  Serious: Yes (Other)
  Sender: FDA-Public Use
  Company Number: None

PATIENT
  Age: 39 Year
  Sex: Female
  Weight: 54.4316 kg

DRUGS (2)
  1. VENOFER [Suspect]
     Indication: ANAEMIA
     Dosage: 500 MG   ONCE A MONTH  IV
     Route: 042
     Dates: start: 20060410, end: 20060410
  2. VENOFER [Suspect]
     Indication: THROMBOCYTHAEMIA
     Dosage: 500 MG   ONCE A MONTH  IV
     Route: 042
     Dates: start: 20060410, end: 20060410

REACTIONS (5)
  - BACK PAIN [None]
  - DYSPHAGIA [None]
  - DYSPNOEA [None]
  - INFUSION RELATED REACTION [None]
  - NAUSEA [None]
